FAERS Safety Report 22281107 (Version 2)
Quarter: 2023Q2

REPORT INFORMATION
  Report Type: Report from Study
  Country: US (occurrence: US)
  Receive Date: 20230504
  Receipt Date: 20230509
  Transmission Date: 20230722
  Serious: Yes (Other)
  Sender: FDA-Public Use
  Company Number: US-ABBVIE-4751425

PATIENT
  Sex: Male

DRUGS (2)
  1. VENCLEXTA [Suspect]
     Active Substance: VENETOCLAX
     Indication: Acute myeloid leukaemia
     Dosage: FORM STRENGTH: 100 MG VENCLEXTA DOSING REGIMEN- TAKE 1 TABLET BY MOUTH FOR 14 DAYS FOLLOWED BY 14...
     Route: 048
  2. VENCLEXTA [Suspect]
     Active Substance: VENETOCLAX
     Indication: Acute myeloid leukaemia
     Dosage: FORM STRENGTH: 100 MG. VENCLEXTA DOSING REGIMEN- TAKE 1 TABLET BY MOUTH FOR 14 DAYS FOLLOWED BY 1...
     Route: 048

REACTIONS (1)
  - Full blood count abnormal [Unknown]
